FAERS Safety Report 9728806 (Version 2)
Quarter: 2014Q1

REPORT INFORMATION
  Report Type: Spontaneous
  Country: US (occurrence: US)
  Receive Date: 20131204
  Receipt Date: 20140306
  Transmission Date: 20141002
  Serious: No
  Sender: FDA-Public Use
  Company Number: US-BIOGENIDEC-2013BI092745

PATIENT
  Sex: Female

DRUGS (1)
  1. TECFIDERA [Suspect]
     Indication: MULTIPLE SCLEROSIS
     Route: 048
     Dates: start: 201306

REACTIONS (8)
  - Cough [Unknown]
  - Headache [Unknown]
  - Local swelling [Unknown]
  - Pain in extremity [Unknown]
  - Decubitus ulcer [Unknown]
  - Injury [Unknown]
  - Pruritus [Unknown]
  - Erythema [Unknown]
